FAERS Safety Report 6386340-8 (Version None)
Quarter: 2009Q4

REPORT INFORMATION
  Report Type: 
  Country: None (occurrence: None)
  Receive Date: 20091002
  Receipt Date: 20090921
  Transmission Date: 20100525
  Serious: Yes (Hospitalization, Other)
  Sender: FDA-Public Use
  Company Number: US-JNJFOC-20090906466

PATIENT
  Sex: Female
  Weight: 99.79 kg

DRUGS (4)
  1. TAPENTADOL HYDROCHLORIDE [Suspect]
     Indication: FIBROMYALGIA
     Route: 048
  2. ZOLOFT [Concomitant]
     Indication: FIBROMYALGIA
  3. XANAX [Concomitant]
     Indication: FIBROMYALGIA
  4. HYPERTENSION MEDICATION [Concomitant]
     Indication: HYPERTENSION

REACTIONS (6)
  - BLOOD PRESSURE INCREASED [None]
  - DECREASED APPETITE [None]
  - HEART RATE INCREASED [None]
  - INAPPROPRIATE SCHEDULE OF DRUG ADMINISTRATION [None]
  - WEIGHT DECREASED [None]
  - WITHDRAWAL SYNDROME [None]
